FAERS Safety Report 20065107 (Version 1)
Quarter: 2021Q4

REPORT INFORMATION
  Report Type: Report from Study
  Country: US (occurrence: US)
  Receive Date: 20211113
  Receipt Date: 20211113
  Transmission Date: 20220303
  Serious: Yes (Other)
  Sender: FDA-Public Use
  Company Number: US-ABBVIE-21K-163-4155373-00

PATIENT
  Sex: Male

DRUGS (1)
  1. HUMIRA [Suspect]
     Active Substance: ADALIMUMAB
     Indication: Uveitis
     Dosage: CITRATE FREE
     Route: 058

REACTIONS (5)
  - Cataract [Not Recovered/Not Resolved]
  - Cataract [Unknown]
  - Hernia [Unknown]
  - Glaucoma [Not Recovered/Not Resolved]
  - Uveitis [Not Recovered/Not Resolved]
